FAERS Safety Report 4310335-9 (Version None)
Quarter: 2004Q1

REPORT INFORMATION
  Report Type: 
  Country: None (occurrence: None)
  Receive Date: 20040303
  Receipt Date: 20020128
  Transmission Date: 20041129
  Serious: Yes (Congenital Anomaly)
  Sender: FDA-Public Use
  Company Number: US-ROCHE-306041

PATIENT
  Sex: Male
  Weight: 3.5 kg

DRUGS (2)
  1. ACCUTANE [Suspect]
     Indication: ACNE
     Dates: start: 20000502, end: 20010715
  2. ORTHO TRI-CYCLEN [Concomitant]
     Indication: CONTRACEPTION
     Dates: end: 20010614

REACTIONS (25)
  - ABDOMINAL PAIN [None]
  - BLADDER DISORDER [None]
  - BLOOD GLUCOSE INCREASED [None]
  - BLOOD POTASSIUM INCREASED [None]
  - BODY TEMPERATURE INCREASED [None]
  - CONGENITAL HYDRONEPHROSIS [None]
  - CONGENITAL MEGAURETER [None]
  - COUGH [None]
  - DIARRHOEA [None]
  - EAR INFECTION [None]
  - ECZEMA [None]
  - ERYTHEMA [None]
  - EYE MOVEMENT DISORDER [None]
  - FLATULENCE [None]
  - JAUNDICE [None]
  - JAUNDICE NEONATAL [None]
  - KIDNEY MALFORMATION [None]
  - MATERNAL DRUGS AFFECTING FOETUS [None]
  - NEONATAL DISORDER [None]
  - OEDEMA [None]
  - POLYHYDRAMNIOS [None]
  - PYREXIA [None]
  - RASH MACULAR [None]
  - RENAL DISORDER [None]
  - SCREAMING [None]
